FAERS Safety Report 10660742 (Version 3)
Quarter: 2014Q4

REPORT INFORMATION
  Report Type: Spontaneous
  Country: JP (occurrence: JP)
  Receive Date: 20141217
  Receipt Date: 20141230
  Transmission Date: 20150529
  Serious: Yes (Hospitalization, Other)
  Sender: FDA-Public Use
  Company Number: JP-ABBVIE-14K-087-1298181-00

PATIENT
  Age: 19 Year
  Sex: Male
  Weight: 52.3 kg

DRUGS (9)
  1. RABEPRAZOLE SODIUM. [Concomitant]
     Active Substance: RABEPRAZOLE SODIUM
     Indication: GASTROINTESTINAL DISORDER
     Route: 048
  2. HUMIRA [Interacting]
     Active Substance: ADALIMUMAB
     Route: 058
     Dates: start: 20140829, end: 20140829
  3. ETIZOLAM [Concomitant]
     Active Substance: ETIZOLAM
     Indication: HEADACHE
     Route: 048
     Dates: start: 20140813, end: 20140820
  4. HUMIRA [Suspect]
     Active Substance: ADALIMUMAB
     Indication: COLITIS ULCERATIVE
     Route: 058
     Dates: start: 20140815, end: 20140815
  5. AZATHIOPRINE. [Interacting]
     Active Substance: AZATHIOPRINE
     Indication: COLITIS ULCERATIVE
     Route: 048
     Dates: start: 20130911
  6. CEFMETAZOLE SODIUM [Suspect]
     Active Substance: CEFMETAZOLE SODIUM
     Indication: ENTERITIS INFECTIOUS
     Route: 041
     Dates: start: 20140812, end: 20140822
  7. BIFIDOBACTERIUM NOS [Concomitant]
     Indication: GASTROINTESTINAL DISORDER
  8. PENTASA [Concomitant]
     Active Substance: MESALAMINE
     Indication: CROHN^S DISEASE
     Route: 048
     Dates: start: 20130614
  9. TRAMADOL HYDROCHLORIDE. [Concomitant]
     Active Substance: TRAMADOL HYDROCHLORIDE
     Indication: HEADACHE
     Route: 048
     Dates: start: 20140813, end: 20140820

REACTIONS (5)
  - Streptococcus test positive [Unknown]
  - Bone marrow failure [Unknown]
  - Pancytopenia [Recovering/Resolving]
  - Drug interaction [Recovering/Resolving]
  - Staphylococcus test positive [Unknown]

NARRATIVE: CASE EVENT DATE: 20140829
